FAERS Safety Report 4365436-6 (Version None)
Quarter: 2004Q2

REPORT INFORMATION
  Report Type: 
  Country: None (occurrence: None)
  Receive Date: 20040525
  Receipt Date: 20040525
  Transmission Date: 20050107
  Serious: Yes (Hospitalization)
  Sender: FDA-Public Use
  Company Number: None

PATIENT
  Age: 90 Year
  Sex: Female
  Weight: 49 kg

DRUGS (10)
  1. RELAFEN [Suspect]
     Indication: OSTEOARTHRITIS
     Dosage: 750 MG PO BID/ AT LEATS  3 MOS
     Route: 048
  2. FOSAMAX [Suspect]
     Indication: OSTEOPOROSIS
     Dosage: 70 MG PO QWK
     Route: 048
  3. LOTREL [Concomitant]
  4. ATIVAN [Concomitant]
  5. CATAPRESS [Concomitant]
  6. MULTI-VITAMIN [Concomitant]
  7. VIT B [Concomitant]
  8. TUSSIONEX [Concomitant]
  9. BISACODYL [Concomitant]
  10. COSOPT [Concomitant]

REACTIONS (11)
  - ABNORMAL FAECES [None]
  - ANOREXIA [None]
  - EPIGASTRIC DISCOMFORT [None]
  - HAEMATEMESIS [None]
  - HIATUS HERNIA [None]
  - LOOSE STOOLS [None]
  - MELAENA [None]
  - NAUSEA [None]
  - RECTAL HAEMORRHAGE [None]
  - THROMBOSIS [None]
  - VOMITING [None]
